FAERS Safety Report 24978272 (Version 3)
Quarter: 2025Q3

REPORT INFORMATION
  Report Type: Spontaneous
  Country: JP (occurrence: JP)
  Receive Date: 20250217
  Receipt Date: 20250810
  Transmission Date: 20251021
  Serious: Yes (Other)
  Sender: ALEXION PHARMACEUTICALS
  Company Number: JP-ASTRAZENECA-250013995_032620_P_1

PATIENT
  Age: 8 Decade
  Sex: Female

DRUGS (6)
  1. FASENRA [Suspect]
     Active Substance: BENRALIZUMAB
     Indication: Asthma
  2. FASENRA [Suspect]
     Active Substance: BENRALIZUMAB
  3. FLUTIFORM [Concomitant]
     Active Substance: FLUTIFORM
     Indication: Asthma
     Route: 065
  4. SPIRIVA [Concomitant]
     Active Substance: TIOTROPIUM BROMIDE MONOHYDRATE
     Indication: Asthma
     Route: 065
  5. PREDONINE [Concomitant]
     Active Substance: PREDNISOLONE
     Route: 065
  6. PREDONINE [Concomitant]
     Active Substance: PREDNISOLONE
     Route: 065

REACTIONS (1)
  - Eosinophilic granulomatosis with polyangiitis [Unknown]
